FAERS Safety Report 15349412 (Version 1)
Quarter: 2018Q3

REPORT INFORMATION
  Report Type: Spontaneous
  Country: US (occurrence: US)
  Receive Date: 20180904
  Receipt Date: 20180904
  Transmission Date: 20181010
  Serious: No
  Sender: FDA-Public Use
  Company Number: US-SA-2018SA200326

PATIENT
  Age: 69 Year
  Sex: Female
  Weight: 105 kg

DRUGS (2)
  1. CAPSAICIN. [Suspect]
     Active Substance: CAPSAICIN
     Indication: MUSCULOSKELETAL PAIN
     Dosage: UNK UNK, UNK
     Route: 065
     Dates: start: 20180714, end: 20180716
  2. PARACETAMOL [Concomitant]
     Active Substance: ACETAMINOPHEN
     Indication: ARTHRITIS
     Dosage: 6 DF, QD

REACTIONS (1)
  - Pruritus [Recovered/Resolved]

NARRATIVE: CASE EVENT DATE: 20180714
